FAERS Safety Report 4395984-4 (Version None)
Quarter: 2004Q3

REPORT INFORMATION
  Report Type: 
  Country: None (occurrence: None)
  Receive Date: 20040707
  Receipt Date: 20040625
  Transmission Date: 20050211
  Serious: Yes (Life-Threatening, Hospitalization)
  Sender: FDA-Public Use
  Company Number: TR-2004-027773

PATIENT
  Age: 51 Year
  Sex: Female

DRUGS (2)
  1. FLUDARA [Suspect]
     Indication: LYMPHOCYTIC LYMPHOMA
     Dosage: 30 MG/M2
     Dates: start: 20021101
  2. CYCLOPHOSPHAMIDE [Concomitant]

REACTIONS (3)
  - BLOOD LACTATE DEHYDROGENASE INCREASED [None]
  - BONE MARROW NECROSIS [None]
  - MYELOFIBROSIS [None]
